FAERS Safety Report 6793099-9 (Version None)
Quarter: 2010Q2

REPORT INFORMATION
  Report Type: 
  Country: None (occurrence: None)
  Receive Date: 20100624
  Receipt Date: 20090821
  Transmission Date: 20101027
  Serious: Yes (Other)
  Sender: FDA-Public Use
  Company Number: US-MYLANLABS-2009S1007173

PATIENT
  Age: 41 Year
  Sex: Female

DRUGS (8)
  1. CLOZAPINE [Suspect]
     Indication: SCHIZOAFFECTIVE DISORDER
     Route: 048
     Dates: end: 20090504
  2. CLOZAPINE [Suspect]
     Route: 048
     Dates: end: 20090504
  3. CLOZAPINE [Suspect]
     Route: 048
     Dates: start: 20090508
  4. CLOZAPINE [Suspect]
     Route: 048
     Dates: start: 20090508
  5. CALCIUM CARBONATE [Concomitant]
  6. CYMBALTA [Concomitant]
  7. TEGRETOL-XR [Concomitant]
  8. M.V.I. [Concomitant]

REACTIONS (1)
  - GRANULOCYTOPENIA [None]
